FAERS Safety Report 23315858 (Version 2)
Quarter: 2024Q1

REPORT INFORMATION
  Report Type: Report from Study
  Country: CN (occurrence: CN)
  Receive Date: 20231219
  Receipt Date: 20240118
  Transmission Date: 20240409
  Serious: No
  Sender: FDA-Public Use
  Company Number: CN-PFIZER INC-PV202300203460

PATIENT
  Age: 88 Year
  Sex: Male

DRUGS (255)
  1. NIRMATRELVIR\RITONAVIR [Suspect]
     Active Substance: NIRMATRELVIR\RITONAVIR
     Indication: COVID-19 treatment
     Dosage: [NIRMATRELVIR 300 MG]/[RITONAVIR 100 MG], 2X/DAY
     Route: 048
     Dates: start: 20220424, end: 20220504
  2. NIRMATRELVIR\RITONAVIR [Suspect]
     Active Substance: NIRMATRELVIR\RITONAVIR
     Dosage: [NIRMATRELVIR 300 MG]/[RITONAVIR 100 MG], 2X/DAY
     Route: 048
     Dates: start: 20220506, end: 20220515
  3. CEFEPIME HYDROCHLORIDE [Concomitant]
     Active Substance: CEFEPIME HYDROCHLORIDE
     Indication: Infection prophylaxis
     Dosage: UNK
     Route: 042
     Dates: start: 20220420, end: 20220421
  4. LEVOFLOXACIN [Concomitant]
     Active Substance: LEVOFLOXACIN
     Indication: Infection prophylaxis
     Dosage: UNK
     Route: 042
     Dates: start: 20220420, end: 20220421
  5. POTASSIUM CHLORIDE [Concomitant]
     Active Substance: POTASSIUM CHLORIDE
     Indication: Mineral supplementation
     Dosage: UNK
     Route: 042
     Dates: start: 20220420, end: 20220422
  6. POTASSIUM CHLORIDE [Concomitant]
     Active Substance: POTASSIUM CHLORIDE
     Dosage: UNK
     Route: 042
     Dates: start: 20220515, end: 20220515
  7. POTASSIUM CHLORIDE [Concomitant]
     Active Substance: POTASSIUM CHLORIDE
     Dosage: UNK
     Route: 042
     Dates: start: 20220517, end: 20220517
  8. POTASSIUM CHLORIDE [Concomitant]
     Active Substance: POTASSIUM CHLORIDE
     Dosage: UNK
     Route: 042
     Dates: start: 20220519, end: 20220519
  9. POTASSIUM CHLORIDE [Concomitant]
     Active Substance: POTASSIUM CHLORIDE
     Dosage: UNK
     Route: 042
     Dates: start: 20220521, end: 20220521
  10. POTASSIUM CHLORIDE [Concomitant]
     Active Substance: POTASSIUM CHLORIDE
     Dosage: UNK
     Route: 042
     Dates: start: 20220528, end: 20220529
  11. POTASSIUM CHLORIDE [Concomitant]
     Active Substance: POTASSIUM CHLORIDE
     Dosage: UNK
     Route: 042
     Dates: start: 20220605, end: 20220605
  12. POTASSIUM CHLORIDE [Concomitant]
     Active Substance: POTASSIUM CHLORIDE
     Dosage: UNK
     Route: 042
     Dates: start: 20220605, end: 20220605
  13. SODIUM CHLORIDE [Concomitant]
     Active Substance: SODIUM CHLORIDE
     Indication: Supplementation therapy
     Dosage: NASOGASTRIC
     Dates: start: 20220420, end: 20220422
  14. SODIUM CHLORIDE [Concomitant]
     Active Substance: SODIUM CHLORIDE
     Dosage: NASOGASTRIC
     Dates: start: 20220422, end: 20220524
  15. SODIUM CHLORIDE [Concomitant]
     Active Substance: SODIUM CHLORIDE
     Dosage: NASOGASTRIC
     Dates: start: 20220508, end: 20220508
  16. SODIUM CHLORIDE [Concomitant]
     Active Substance: SODIUM CHLORIDE
     Dosage: NASOGASTRIC
     Dates: start: 20220518, end: 20220518
  17. SODIUM CHLORIDE [Concomitant]
     Active Substance: SODIUM CHLORIDE
     Dosage: NASOGASTRIC
     Dates: start: 20220520, end: 20220520
  18. SODIUM CHLORIDE [Concomitant]
     Active Substance: SODIUM CHLORIDE
     Dosage: NASOGASTRIC
     Dates: start: 20220522, end: 20220522
  19. SODIUM CHLORIDE [Concomitant]
     Active Substance: SODIUM CHLORIDE
     Dosage: NASOGASTRIC
     Dates: start: 20220525, end: 20220525
  20. SODIUM CHLORIDE [Concomitant]
     Active Substance: SODIUM CHLORIDE
     Dosage: NASOGASTRIC
     Dates: start: 20220526, end: 20220526
  21. SODIUM CHLORIDE [Concomitant]
     Active Substance: SODIUM CHLORIDE
     Dosage: NASOGASTRIC
     Dates: start: 20220601, end: 20220601
  22. DALTEPARIN SODIUM [Concomitant]
     Active Substance: DALTEPARIN SODIUM
     Indication: Anticoagulant therapy
     Dosage: UNK
     Route: 058
     Dates: start: 20220421, end: 20220507
  23. MEROPENEM [Concomitant]
     Active Substance: MEROPENEM
     Indication: Infection prophylaxis
     Dosage: UNK
     Route: 042
     Dates: start: 20220421, end: 20220422
  24. MEROPENEM [Concomitant]
     Active Substance: MEROPENEM
     Dosage: UNK
     Route: 042
     Dates: start: 20220422, end: 20220427
  25. BISOPROLOL FUMARATE [Concomitant]
     Active Substance: BISOPROLOL FUMARATE
     Indication: Heart rate
     Dosage: UNK
     Route: 048
     Dates: start: 20220421, end: 20220422
  26. BISOPROLOL FUMARATE [Concomitant]
     Active Substance: BISOPROLOL FUMARATE
     Dosage: UNK
     Route: 048
     Dates: start: 20220422, end: 20220511
  27. ENTERAL NUTRITIONAL SUSPENSION (SP) [Concomitant]
     Indication: Nutritional supplementation
     Dosage: UNK
     Route: 045
     Dates: start: 20220419, end: 20220419
  28. ENTERAL NUTRITIONAL SUSPENSION (SP) [Concomitant]
     Dosage: UNK
     Route: 045
     Dates: start: 20220420, end: 20220515
  29. ENTERAL NUTRITIONAL SUSPENSION (SP) [Concomitant]
     Dosage: UNK
     Route: 045
     Dates: start: 20220510, end: 20220511
  30. ENTERAL NUTRITIONAL SUSPENSION (SP) [Concomitant]
     Dosage: NASOGASTRIC
     Dates: start: 20220515, end: 20220524
  31. ENTERAL NUTRITIONAL SUSPENSION (SP) [Concomitant]
     Dosage: NASOGASTRIC
     Dates: start: 20220517, end: 20220517
  32. ENTERAL NUTRITIONAL SUSPENSION (SP) [Concomitant]
     Dosage: NASOGASTRIC
     Dates: start: 20220524, end: 20220527
  33. ENTERAL NUTRITIONAL SUSPENSION (SP) [Concomitant]
     Dosage: NASOGASTRIC
     Dates: start: 20220530, end: 20220530
  34. ENTERAL NUTRITIONAL SUSPENSION (SP) [Concomitant]
     Dosage: NASOGASTRIC
     Dates: start: 20220530, end: 20220531
  35. ENTERAL NUTRITIONAL SUSPENSION (SP) [Concomitant]
     Dosage: NASOGASTRIC
     Dates: start: 20220531, end: 20220610
  36. ENTERAL NUTRITIONAL SUSPENSION (SP) [Concomitant]
     Dosage: NASOGASTRIC
     Dates: start: 20220610
  37. OXYGEN [Concomitant]
     Active Substance: OXYGEN
     Indication: COVID-19
     Dosage: UNK
     Route: 055
     Dates: start: 20220420, end: 20220422
  38. OXYGEN [Concomitant]
     Active Substance: OXYGEN
     Dosage: PRESSURE OXYGEN
     Dates: start: 20220427, end: 20220511
  39. OXYGEN [Concomitant]
     Active Substance: OXYGEN
     Dosage: PRESSURE OXYGEN
     Dates: start: 20220508, end: 20220508
  40. OXYGEN [Concomitant]
     Active Substance: OXYGEN
     Dosage: PRESSURE OXYGEN
     Dates: start: 20220508, end: 20220510
  41. OXYGEN [Concomitant]
     Active Substance: OXYGEN
     Dosage: PRESSURE OXYGEN
     Dates: start: 20220511, end: 20220515
  42. OXYGEN [Concomitant]
     Active Substance: OXYGEN
     Dosage: PRESSURE OXYGEN
     Route: 055
     Dates: start: 20220515
  43. METHYLPREDNISOLONE SODIUM SUCCINATE [Concomitant]
     Active Substance: METHYLPREDNISOLONE SODIUM SUCCINATE
     Indication: COVID-19
     Dosage: FOR INJECTION
     Route: 042
     Dates: start: 20220422, end: 20220423
  44. METHYLPREDNISOLONE SODIUM SUCCINATE [Concomitant]
     Active Substance: METHYLPREDNISOLONE SODIUM SUCCINATE
     Indication: Asthma prophylaxis
     Dosage: FOR INJECTION
     Route: 042
     Dates: start: 20220424, end: 20220424
  45. METHYLPREDNISOLONE SODIUM SUCCINATE [Concomitant]
     Active Substance: METHYLPREDNISOLONE SODIUM SUCCINATE
     Indication: Antiinflammatory therapy
     Dosage: FOR INJECTION
     Route: 042
     Dates: start: 20220503, end: 20220506
  46. METHYLPREDNISOLONE SODIUM SUCCINATE [Concomitant]
     Active Substance: METHYLPREDNISOLONE SODIUM SUCCINATE
     Dosage: FOR INJECTION
     Route: 042
     Dates: start: 20220511, end: 20220515
  47. METHYLPREDNISOLONE SODIUM SUCCINATE [Concomitant]
     Active Substance: METHYLPREDNISOLONE SODIUM SUCCINATE
     Dosage: FOR INJECTION
     Route: 042
     Dates: start: 20220602, end: 20220602
  48. METHYLPREDNISOLONE SODIUM SUCCINATE [Concomitant]
     Active Substance: METHYLPREDNISOLONE SODIUM SUCCINATE
     Dosage: FOR INJECTION
     Route: 042
     Dates: start: 20220606, end: 20220606
  49. METHYLPREDNISOLONE SODIUM SUCCINATE [Concomitant]
     Active Substance: METHYLPREDNISOLONE SODIUM SUCCINATE
     Dosage: FOR INJECTION
     Route: 042
     Dates: start: 20220606, end: 20220610
  50. PANTOPRAZOLE SODIUM [Concomitant]
     Active Substance: PANTOPRAZOLE SODIUM
     Indication: Prophylaxis
     Dosage: UNK
     Route: 042
     Dates: start: 20220422, end: 20220427
  51. AMINOPHYLLINE [Concomitant]
     Active Substance: AMINOPHYLLINE
     Indication: Asthma
     Dosage: UNK
     Route: 042
     Dates: start: 20220422, end: 20220501
  52. BUDESONIDE [Concomitant]
     Active Substance: BUDESONIDE
     Indication: Asthma
     Dosage: SUSPENSION FOR INHALATION
     Route: 055
     Dates: start: 20220424, end: 20220428
  53. BUDESONIDE [Concomitant]
     Active Substance: BUDESONIDE
     Dosage: INHALATION SUSPENSION
     Route: 055
     Dates: start: 20220531
  54. IPRATROPIUM BROMIDE [Concomitant]
     Active Substance: IPRATROPIUM BROMIDE\IPRATROPIUM BROMIDE ANHYDROUS
     Indication: Asthma
     Dosage: SOLUTION FOR INHALATION
     Route: 055
     Dates: start: 20220424, end: 20220428
  55. CHYMOTRYPSIN [Concomitant]
     Active Substance: CHYMOTRYPSIN
     Indication: Productive cough
     Dosage: FOR INJECTION
     Route: 055
     Dates: start: 20220424, end: 20220428
  56. CEFOPERAZONE SODIUM\SULBACTAM SODIUM [Concomitant]
     Active Substance: CEFOPERAZONE SODIUM\SULBACTAM SODIUM
     Indication: Anti-infective therapy
     Dosage: FOR INJECTION
     Route: 042
     Dates: start: 20220427, end: 20220506
  57. CEFOPERAZONE SODIUM\SULBACTAM SODIUM [Concomitant]
     Active Substance: CEFOPERAZONE SODIUM\SULBACTAM SODIUM
     Indication: Antiinflammatory therapy
     Dosage: FOR INJECTION
     Route: 042
     Dates: start: 20220511, end: 20220511
  58. CEFOPERAZONE SODIUM\SULBACTAM SODIUM [Concomitant]
     Active Substance: CEFOPERAZONE SODIUM\SULBACTAM SODIUM
     Dosage: FOR INJECTION
     Route: 042
     Dates: start: 20220511, end: 20220518
  59. CEFOPERAZONE SODIUM\SULBACTAM SODIUM [Concomitant]
     Active Substance: CEFOPERAZONE SODIUM\SULBACTAM SODIUM
     Dosage: FOR INJECTION
     Route: 042
     Dates: start: 20220515, end: 20220515
  60. CEFOPERAZONE SODIUM\SULBACTAM SODIUM [Concomitant]
     Active Substance: CEFOPERAZONE SODIUM\SULBACTAM SODIUM
     Dosage: FOR INJECTION
     Route: 042
     Dates: start: 20220601, end: 20220601
  61. LEVOFLOXACIN [Concomitant]
     Active Substance: LEVOFLOXACIN
     Indication: Infection prophylaxis
     Dosage: UNK
     Route: 042
     Dates: start: 20220427, end: 20220506
  62. ESOMEPRAZOLE SODIUM [Concomitant]
     Active Substance: ESOMEPRAZOLE SODIUM
     Indication: Prophylaxis
     Dosage: FOR INJECTION
     Route: 042
     Dates: start: 20220427, end: 20220507
  63. ESOMEPRAZOLE SODIUM [Concomitant]
     Active Substance: ESOMEPRAZOLE SODIUM
     Dosage: FOR INJECTION
     Route: 042
     Dates: start: 20220507, end: 20220511
  64. HERBALS [Concomitant]
     Active Substance: HERBALS
     Indication: COVID-19
     Dosage: UNK
     Route: 042
     Dates: start: 20220428, end: 20220507
  65. TAN RE QING [Concomitant]
     Indication: COVID-19
     Dosage: UNK
     Route: 048
     Dates: start: 20220429, end: 20220429
  66. THYMALFASIN [Concomitant]
     Active Substance: THYMALFASIN
     Indication: Supplementation therapy
     Dosage: FOR INJECTION
     Route: 058
     Dates: start: 20220430, end: 20220511
  67. THYMALFASIN [Concomitant]
     Active Substance: THYMALFASIN
     Dosage: FOR INJECTION
     Route: 058
     Dates: start: 20220512, end: 20220512
  68. THYMALFASIN [Concomitant]
     Active Substance: THYMALFASIN
     Dosage: FOR INJECTION
     Route: 058
     Dates: start: 20220512, end: 20220515
  69. ALBUMIN HUMAN [Concomitant]
     Active Substance: ALBUMIN HUMAN
     Indication: Nutritional supplementation
     Dosage: UNK
     Route: 042
     Dates: start: 20220424, end: 20220424
  70. ALBUMIN HUMAN [Concomitant]
     Active Substance: ALBUMIN HUMAN
     Indication: Supportive care
     Dosage: UNK
     Route: 042
     Dates: start: 20220426, end: 20220426
  71. ALBUMIN HUMAN [Concomitant]
     Active Substance: ALBUMIN HUMAN
     Dosage: UNK
     Route: 042
     Dates: start: 20220501, end: 20220501
  72. ALBUMIN HUMAN [Concomitant]
     Active Substance: ALBUMIN HUMAN
     Dosage: UNK
     Route: 042
     Dates: start: 20220502, end: 20220502
  73. ALBUMIN HUMAN [Concomitant]
     Active Substance: ALBUMIN HUMAN
     Dosage: UNK
     Route: 042
     Dates: start: 20220503, end: 20220503
  74. ALBUMIN HUMAN [Concomitant]
     Active Substance: ALBUMIN HUMAN
     Dosage: UNK
     Route: 042
     Dates: start: 20220506, end: 20220508
  75. ALBUMIN HUMAN [Concomitant]
     Active Substance: ALBUMIN HUMAN
     Dosage: UNK
     Route: 042
     Dates: start: 20220508, end: 20220508
  76. ALBUMIN HUMAN [Concomitant]
     Active Substance: ALBUMIN HUMAN
     Dosage: UNK
     Route: 042
     Dates: start: 20220508, end: 20220511
  77. ALBUMIN HUMAN [Concomitant]
     Active Substance: ALBUMIN HUMAN
     Dosage: UNK
     Route: 042
     Dates: start: 20220513, end: 20220513
  78. FUROSEMIDE [Concomitant]
     Active Substance: FUROSEMIDE
     Indication: Polyuria
     Dosage: UNK
     Route: 042
     Dates: start: 20220424, end: 20220424
  79. FUROSEMIDE [Concomitant]
     Active Substance: FUROSEMIDE
     Dosage: UNK
     Route: 042
     Dates: start: 20220426, end: 20220426
  80. FUROSEMIDE [Concomitant]
     Active Substance: FUROSEMIDE
     Dosage: UNK
     Route: 042
     Dates: start: 20220501, end: 20220501
  81. FUROSEMIDE [Concomitant]
     Active Substance: FUROSEMIDE
     Dosage: UNK
     Route: 042
     Dates: start: 20220502, end: 20220502
  82. FUROSEMIDE [Concomitant]
     Active Substance: FUROSEMIDE
     Dosage: UNK
     Dates: start: 20220504, end: 20220504
  83. FUROSEMIDE [Concomitant]
     Active Substance: FUROSEMIDE
     Dosage: UNK
     Route: 042
     Dates: start: 20220506, end: 20220509
  84. FUROSEMIDE [Concomitant]
     Active Substance: FUROSEMIDE
     Dosage: UNK
     Route: 042
     Dates: start: 20220516, end: 20220516
  85. FUROSEMIDE [Concomitant]
     Active Substance: FUROSEMIDE
     Dosage: UNK
     Route: 042
     Dates: start: 20220520, end: 20220521
  86. FUROSEMIDE [Concomitant]
     Active Substance: FUROSEMIDE
     Dosage: UNK
     Route: 042
     Dates: start: 20220521, end: 20220524
  87. FUROSEMIDE [Concomitant]
     Active Substance: FUROSEMIDE
     Dosage: UNK
     Route: 042
     Dates: start: 20220525, end: 20220525
  88. FUROSEMIDE [Concomitant]
     Active Substance: FUROSEMIDE
     Dosage: UNK
     Route: 042
     Dates: start: 20220527, end: 20220527
  89. FUROSEMIDE [Concomitant]
     Active Substance: FUROSEMIDE
     Dosage: UNK
     Route: 042
     Dates: start: 20220530, end: 20220601
  90. FUROSEMIDE [Concomitant]
     Active Substance: FUROSEMIDE
     Dosage: UNK
     Route: 042
     Dates: start: 20220602, end: 20220602
  91. FUROSEMIDE [Concomitant]
     Active Substance: FUROSEMIDE
     Dosage: UNK
     Route: 042
     Dates: start: 20220604, end: 20220604
  92. FUROSEMIDE [Concomitant]
     Active Substance: FUROSEMIDE
     Dosage: UNK
     Route: 042
     Dates: start: 20220605, end: 20220605
  93. FUROSEMIDE [Concomitant]
     Active Substance: FUROSEMIDE
     Dosage: UNK
     Route: 042
     Dates: start: 20220608, end: 20220608
  94. FUROSEMIDE [Concomitant]
     Active Substance: FUROSEMIDE
     Dosage: UNK
     Route: 042
     Dates: start: 20220609, end: 20220609
  95. FUROSEMIDE [Concomitant]
     Active Substance: FUROSEMIDE
     Dosage: UNK
     Route: 042
     Dates: start: 20220612, end: 20220612
  96. POTASSIUM CHLORIDE [Concomitant]
     Active Substance: POTASSIUM CHLORIDE
     Indication: Mineral supplementation
     Dosage: NASOGASTRIC
     Dates: start: 20220422, end: 20220424
  97. POTASSIUM CHLORIDE [Concomitant]
     Active Substance: POTASSIUM CHLORIDE
     Dosage: UNK
     Route: 050
     Dates: start: 20220515, end: 20220515
  98. POTASSIUM CHLORIDE [Concomitant]
     Active Substance: POTASSIUM CHLORIDE
     Dosage: NASOGASTRIC
     Dates: start: 20220601, end: 20220601
  99. SODIUM CHLORIDE [Concomitant]
     Active Substance: SODIUM CHLORIDE
     Indication: Supplementation therapy
     Dosage: UNK
     Route: 048
     Dates: start: 20220506, end: 20220507
  100. SODIUM CHLORIDE [Concomitant]
     Active Substance: SODIUM CHLORIDE
     Dosage: UNK
     Route: 048
     Dates: start: 20220509, end: 20220510
  101. SODIUM CHLORIDE [Concomitant]
     Active Substance: SODIUM CHLORIDE
     Dosage: UNK
     Route: 048
     Dates: start: 20220510, end: 20220510
  102. SODIUM CHLORIDE [Concomitant]
     Active Substance: SODIUM CHLORIDE
     Dosage: UNK
     Route: 048
     Dates: start: 20220510, end: 20220511
  103. POTASSIUM CHLORIDE [Concomitant]
     Active Substance: POTASSIUM CHLORIDE
     Indication: Mineral supplementation
     Dosage: SUSTAINED-RELEASE
     Route: 048
     Dates: start: 20220506, end: 20220511
  104. SHENG MAI [CODONOPSIS SPP. ROOT;OPHIOPOGON JAPONICUS ROOT TUBER;SCHISA [Concomitant]
     Indication: COVID-19
     Dosage: UNK
     Route: 042
     Dates: start: 20220507, end: 20220511
  105. TAN RE QING [Concomitant]
     Indication: COVID-19
     Dosage: UNK
     Route: 042
     Dates: start: 20220507, end: 20220510
  106. ENOXAPARIN SODIUM [Concomitant]
     Active Substance: ENOXAPARIN SODIUM
     Indication: Anticoagulant therapy
     Dosage: UNK
     Route: 058
     Dates: start: 20220417, end: 20220608
  107. ENOXAPARIN SODIUM [Concomitant]
     Active Substance: ENOXAPARIN SODIUM
     Dosage: UNK
     Route: 058
     Dates: start: 20220507, end: 20220507
  108. ENOXAPARIN SODIUM [Concomitant]
     Active Substance: ENOXAPARIN SODIUM
     Dosage: UNK
     Route: 058
     Dates: start: 20220507, end: 20220511
  109. ENOXAPARIN SODIUM [Concomitant]
     Active Substance: ENOXAPARIN SODIUM
     Dosage: UNK
     Route: 058
     Dates: start: 20220511, end: 20220515
  110. ENOXAPARIN SODIUM [Concomitant]
     Active Substance: ENOXAPARIN SODIUM
     Dosage: UNK
     Route: 058
     Dates: start: 20220515, end: 20220516
  111. ENOXAPARIN SODIUM [Concomitant]
     Active Substance: ENOXAPARIN SODIUM
     Dosage: UNK
     Route: 058
     Dates: start: 20220516, end: 20220517
  112. AMBROXOL HYDROCHLORIDE [Concomitant]
     Active Substance: AMBROXOL HYDROCHLORIDE
     Indication: COVID-19
     Dosage: UNK
     Route: 042
     Dates: start: 20220511, end: 20220511
  113. AMBROXOL HYDROCHLORIDE [Concomitant]
     Active Substance: AMBROXOL HYDROCHLORIDE
     Indication: Productive cough
     Dosage: UNK
     Route: 042
     Dates: start: 20220511, end: 20220515
  114. AMBROXOL HYDROCHLORIDE [Concomitant]
     Active Substance: AMBROXOL HYDROCHLORIDE
     Dosage: UNK
     Route: 042
     Dates: start: 20220515, end: 20220515
  115. AMBROXOL HYDROCHLORIDE [Concomitant]
     Active Substance: AMBROXOL HYDROCHLORIDE
     Dosage: UNK
     Route: 042
     Dates: start: 20220515, end: 20220525
  116. AMBROXOL HYDROCHLORIDE [Concomitant]
     Active Substance: AMBROXOL HYDROCHLORIDE
     Dosage: UNK
     Route: 042
     Dates: start: 20220525, end: 20220525
  117. VITAMIN K1 [Concomitant]
     Active Substance: PHYTONADIONE
     Indication: Haemostasis
     Dosage: UNK
     Route: 030
     Dates: start: 20220511, end: 20220511
  118. VITAMIN K1 [Concomitant]
     Active Substance: PHYTONADIONE
     Dosage: UNK
     Route: 030
     Dates: start: 20220531, end: 20220531
  119. VITAMIN K1 [Concomitant]
     Active Substance: PHYTONADIONE
     Dosage: UNK
     Route: 030
     Dates: start: 20220515, end: 20220601
  120. VITAMIN K1 [Concomitant]
     Active Substance: PHYTONADIONE
     Dosage: UNK
     Route: 030
     Dates: start: 20220606, end: 20220606
  121. HEPARIN SODIUM [Concomitant]
     Active Substance: HEPARIN SODIUM
     Indication: Anticoagulant therapy
     Dosage: UNK
     Dates: start: 20220511, end: 20220511
  122. HEPARIN SODIUM [Concomitant]
     Active Substance: HEPARIN SODIUM
     Dosage: UNK
     Dates: start: 20220511, end: 20220515
  123. HEPARIN SODIUM [Concomitant]
     Active Substance: HEPARIN SODIUM
     Dosage: UNK
     Dates: start: 20220515, end: 20220527
  124. HERBALS\MENTHOL [Concomitant]
     Active Substance: HERBALS\MENTHOL
     Indication: COVID-19
     Dosage: UNK
     Route: 048
     Dates: start: 20220419, end: 20220419
  125. AMIODARONE HYDROCHLORIDE [Concomitant]
     Active Substance: AMIODARONE HYDROCHLORIDE
     Indication: Heart rate
     Dosage: UNK
     Dates: start: 20220421, end: 20220421
  126. AMIODARONE HYDROCHLORIDE [Concomitant]
     Active Substance: AMIODARONE HYDROCHLORIDE
     Indication: Arrhythmia prophylaxis
     Dosage: UNK
     Route: 042
     Dates: start: 20220421, end: 20220421
  127. AMIODARONE HYDROCHLORIDE [Concomitant]
     Active Substance: AMIODARONE HYDROCHLORIDE
     Dosage: UNK
     Route: 042
     Dates: start: 20220512, end: 20220512
  128. AMIODARONE HYDROCHLORIDE [Concomitant]
     Active Substance: AMIODARONE HYDROCHLORIDE
     Dosage: UNK
     Route: 042
     Dates: start: 20220515, end: 20220515
  129. NIFEDIPINE [Concomitant]
     Active Substance: NIFEDIPINE
     Indication: Hypertension
     Dosage: UNK
     Route: 045
     Dates: start: 20220423, end: 20220424
  130. NIFEDIPINE [Concomitant]
     Active Substance: NIFEDIPINE
     Dosage: UNK
     Route: 045
     Dates: start: 20220508, end: 20220508
  131. THYMUS [THYMUS SPP.] [Concomitant]
     Indication: Prophylaxis
     Dosage: THYMUS METHOD
     Route: 058
     Dates: start: 20220515
  132. LACTULOSE [Concomitant]
     Active Substance: LACTULOSE
     Indication: Gastrointestinal pain
     Dosage: NASOGASTRIC
     Dates: start: 20220515, end: 20220515
  133. LACTULOSE [Concomitant]
     Active Substance: LACTULOSE
     Dosage: NASOGASTRIC
     Dates: start: 20220521, end: 20220521
  134. LACTULOSE [Concomitant]
     Active Substance: LACTULOSE
     Dosage: NASOGASTRIC
     Dates: start: 20220521, end: 20220523
  135. ERYTHROPOIETIN [Concomitant]
     Active Substance: ERYTHROPOIETIN
     Indication: Thrombocytopenia
     Dosage: UNK
     Route: 058
     Dates: start: 20220517, end: 20220610
  136. ENOXAPARIN SODIUM [Concomitant]
     Active Substance: ENOXAPARIN SODIUM
     Indication: Anticoagulant therapy
     Dosage: UNK
     Route: 042
     Dates: start: 20220608
  137. LORATADINE [Concomitant]
     Active Substance: LORATADINE
     Indication: Antiallergic therapy
     Dosage: NASOGASTRIC
     Dates: start: 20220518, end: 20220518
  138. LORATADINE [Concomitant]
     Active Substance: LORATADINE
     Dosage: NASOGASTRIC
     Dates: start: 20220518, end: 20220602
  139. RHUBARB [Concomitant]
     Active Substance: RHUBARB
     Indication: Enema administration
     Dosage: NASOGASTRIC
     Dates: start: 20220521
  140. SODIUM CHLORIDE [Concomitant]
     Active Substance: SODIUM CHLORIDE
     Indication: Supplementation therapy
     Dosage: UNK
     Route: 042
     Dates: start: 20220505, end: 20220505
  141. SODIUM CHLORIDE [Concomitant]
     Active Substance: SODIUM CHLORIDE
     Indication: Electrolyte imbalance
     Dosage: UNK
     Route: 042
     Dates: start: 20220515, end: 20220515
  142. COMPOUND CALAMINE [Concomitant]
     Indication: Antiallergic therapy
     Dosage: LOTION, PERCUTANEOUS
     Dates: start: 20220521
  143. DOPAMINE HYDROCHLORIDE [Concomitant]
     Active Substance: DOPAMINE HYDROCHLORIDE
     Indication: Supplementation therapy
     Dosage: UNK
     Route: 042
     Dates: start: 20220511, end: 20220511
  144. CLOPIDOGREL BISULFATE [Concomitant]
     Active Substance: CLOPIDOGREL BISULFATE
     Indication: Prophylaxis
     Dosage: NASOGASTRIC
     Dates: start: 20220527, end: 20220527
  145. CLOPIDOGREL BISULFATE [Concomitant]
     Active Substance: CLOPIDOGREL BISULFATE
     Dosage: NASOGASTRIC
     Dates: start: 20220528, end: 20220528
  146. MOSAPRIDE CITRATE [Concomitant]
     Active Substance: MOSAPRIDE CITRATE
     Indication: Gastrointestinal disorder
     Dosage: NASOGASTRIC
     Dates: start: 20220530, end: 20220530
  147. MOSAPRIDE CITRATE [Concomitant]
     Active Substance: MOSAPRIDE CITRATE
     Dosage: NASOGASTRIC
     Dates: start: 20220609, end: 20220609
  148. MOSAPRIDE CITRATE [Concomitant]
     Active Substance: MOSAPRIDE CITRATE
     Dosage: NASOGASTRIC
     Dates: start: 20220530, end: 20220610
  149. MIDAZOLAM [Concomitant]
     Active Substance: MIDAZOLAM
     Indication: Sedation
     Dosage: UNK
     Route: 050
     Dates: start: 20220511, end: 20220511
  150. MIDAZOLAM [Concomitant]
     Active Substance: MIDAZOLAM
     Dosage: UNK
     Route: 050
     Dates: start: 20220512, end: 20220512
  151. MIDAZOLAM [Concomitant]
     Active Substance: MIDAZOLAM
     Dosage: UNK
     Route: 050
     Dates: start: 20220513, end: 20220513
  152. MIDAZOLAM [Concomitant]
     Active Substance: MIDAZOLAM
     Dosage: UNK
     Route: 050
     Dates: start: 20220514, end: 20220514
  153. MIDAZOLAM [Concomitant]
     Active Substance: MIDAZOLAM
     Dosage: UNK
     Route: 042
     Dates: start: 20220515, end: 20220515
  154. MIDAZOLAM [Concomitant]
     Active Substance: MIDAZOLAM
     Dosage: UNK
     Route: 042
     Dates: start: 20220516, end: 20220516
  155. MIDAZOLAM [Concomitant]
     Active Substance: MIDAZOLAM
     Dosage: UNK
     Route: 042
     Dates: start: 20220517, end: 20220518
  156. MIDAZOLAM [Concomitant]
     Active Substance: MIDAZOLAM
     Dosage: UNK
     Route: 042
     Dates: start: 20220519, end: 20220519
  157. MIDAZOLAM [Concomitant]
     Active Substance: MIDAZOLAM
     Dosage: UNK
     Route: 042
     Dates: start: 20220520, end: 20220520
  158. MIDAZOLAM [Concomitant]
     Active Substance: MIDAZOLAM
     Dosage: UNK
     Route: 042
     Dates: start: 20220521, end: 20220521
  159. MIDAZOLAM [Concomitant]
     Active Substance: MIDAZOLAM
     Dosage: UNK
     Route: 042
     Dates: start: 20220523, end: 20220523
  160. MIDAZOLAM [Concomitant]
     Active Substance: MIDAZOLAM
     Dosage: UNK
     Route: 042
     Dates: start: 20220524, end: 20220524
  161. MIDAZOLAM [Concomitant]
     Active Substance: MIDAZOLAM
     Dosage: UNK
     Route: 042
     Dates: start: 20220525, end: 20220525
  162. MIDAZOLAM [Concomitant]
     Active Substance: MIDAZOLAM
     Dosage: UNK
     Route: 042
     Dates: start: 20220526, end: 20220526
  163. MIDAZOLAM [Concomitant]
     Active Substance: MIDAZOLAM
     Dosage: UNK
     Route: 042
     Dates: start: 20220527, end: 20220527
  164. MIDAZOLAM [Concomitant]
     Active Substance: MIDAZOLAM
     Dosage: UNK
     Route: 042
     Dates: start: 20220528, end: 20220528
  165. MIDAZOLAM [Concomitant]
     Active Substance: MIDAZOLAM
     Dosage: UNK
     Route: 042
     Dates: start: 20220529, end: 20220530
  166. MIDAZOLAM [Concomitant]
     Active Substance: MIDAZOLAM
     Dosage: UNK
     Route: 042
     Dates: start: 20220531, end: 20220531
  167. MIDAZOLAM [Concomitant]
     Active Substance: MIDAZOLAM
     Dosage: UNK
     Route: 042
     Dates: start: 20220602, end: 20220602
  168. MIDAZOLAM [Concomitant]
     Active Substance: MIDAZOLAM
     Dosage: UNK
     Route: 042
     Dates: start: 20220603, end: 20220603
  169. MIDAZOLAM [Concomitant]
     Active Substance: MIDAZOLAM
     Dosage: UNK
     Route: 042
     Dates: start: 20220604, end: 20220604
  170. MIDAZOLAM [Concomitant]
     Active Substance: MIDAZOLAM
     Dosage: UNK
     Route: 042
     Dates: start: 20220605, end: 20220605
  171. MIDAZOLAM [Concomitant]
     Active Substance: MIDAZOLAM
     Dosage: UNK
     Route: 042
     Dates: start: 20220606, end: 20220606
  172. MIDAZOLAM [Concomitant]
     Active Substance: MIDAZOLAM
     Dosage: UNK
     Route: 042
     Dates: start: 20220607, end: 20220607
  173. MIDAZOLAM [Concomitant]
     Active Substance: MIDAZOLAM
     Dosage: UNK
     Route: 042
     Dates: start: 20220608, end: 20220608
  174. MIDAZOLAM [Concomitant]
     Active Substance: MIDAZOLAM
     Dosage: UNK
     Route: 042
     Dates: start: 20220609, end: 20220609
  175. MIDAZOLAM [Concomitant]
     Active Substance: MIDAZOLAM
     Dosage: UNK
     Route: 042
     Dates: start: 20220610, end: 20220610
  176. MIDAZOLAM [Concomitant]
     Active Substance: MIDAZOLAM
     Dosage: UNK
     Route: 042
     Dates: start: 20220611, end: 20220611
  177. MIDAZOLAM [Concomitant]
     Active Substance: MIDAZOLAM
     Dosage: UNK
     Route: 042
     Dates: start: 20220612, end: 20220612
  178. REMIFENTANIL HYDROCHLORIDE [Concomitant]
     Active Substance: REMIFENTANIL HYDROCHLORIDE
     Indication: Analgesic therapy
     Dosage: UNK
     Route: 050
     Dates: start: 20220511, end: 20220511
  179. REMIFENTANIL HYDROCHLORIDE [Concomitant]
     Active Substance: REMIFENTANIL HYDROCHLORIDE
     Dosage: UNK
     Route: 050
     Dates: start: 20220512, end: 20220512
  180. REMIFENTANIL HYDROCHLORIDE [Concomitant]
     Active Substance: REMIFENTANIL HYDROCHLORIDE
     Dosage: UNK
     Route: 042
     Dates: start: 20220513, end: 20220513
  181. REMIFENTANIL HYDROCHLORIDE [Concomitant]
     Active Substance: REMIFENTANIL HYDROCHLORIDE
     Dosage: UNK
     Route: 042
     Dates: start: 20220514, end: 20220514
  182. REMIFENTANIL HYDROCHLORIDE [Concomitant]
     Active Substance: REMIFENTANIL HYDROCHLORIDE
     Dosage: UNK
     Route: 042
     Dates: start: 20220515, end: 20220515
  183. REMIFENTANIL HYDROCHLORIDE [Concomitant]
     Active Substance: REMIFENTANIL HYDROCHLORIDE
     Dosage: UNK
     Route: 042
     Dates: start: 20220516, end: 20220516
  184. REMIFENTANIL HYDROCHLORIDE [Concomitant]
     Active Substance: REMIFENTANIL HYDROCHLORIDE
     Dosage: UNK
     Route: 042
     Dates: start: 20220517, end: 20220518
  185. REMIFENTANIL HYDROCHLORIDE [Concomitant]
     Active Substance: REMIFENTANIL HYDROCHLORIDE
     Dosage: UNK
     Route: 042
     Dates: start: 20220519, end: 20220519
  186. REMIFENTANIL HYDROCHLORIDE [Concomitant]
     Active Substance: REMIFENTANIL HYDROCHLORIDE
     Dosage: UNK
     Route: 042
     Dates: start: 20220520, end: 20220520
  187. REMIFENTANIL HYDROCHLORIDE [Concomitant]
     Active Substance: REMIFENTANIL HYDROCHLORIDE
     Dosage: UNK
     Route: 042
     Dates: start: 20220521, end: 20220521
  188. REMIFENTANIL HYDROCHLORIDE [Concomitant]
     Active Substance: REMIFENTANIL HYDROCHLORIDE
     Dosage: UNK
     Route: 042
     Dates: start: 20220523, end: 20220523
  189. REMIFENTANIL HYDROCHLORIDE [Concomitant]
     Active Substance: REMIFENTANIL HYDROCHLORIDE
     Dosage: UNK
     Route: 042
     Dates: start: 20220524, end: 20220524
  190. REMIFENTANIL HYDROCHLORIDE [Concomitant]
     Active Substance: REMIFENTANIL HYDROCHLORIDE
     Dosage: UNK
     Route: 042
     Dates: start: 20220525, end: 20220525
  191. REMIFENTANIL HYDROCHLORIDE [Concomitant]
     Active Substance: REMIFENTANIL HYDROCHLORIDE
     Dosage: UNK
     Route: 042
     Dates: start: 20220526, end: 20220526
  192. REMIFENTANIL HYDROCHLORIDE [Concomitant]
     Active Substance: REMIFENTANIL HYDROCHLORIDE
     Dosage: UNK
     Route: 042
     Dates: start: 20220527, end: 20220527
  193. REMIFENTANIL HYDROCHLORIDE [Concomitant]
     Active Substance: REMIFENTANIL HYDROCHLORIDE
     Dosage: UNK
     Route: 042
     Dates: start: 20220528, end: 20220528
  194. REMIFENTANIL HYDROCHLORIDE [Concomitant]
     Active Substance: REMIFENTANIL HYDROCHLORIDE
     Dosage: UNK
     Route: 042
     Dates: start: 20220529, end: 20220529
  195. REMIFENTANIL HYDROCHLORIDE [Concomitant]
     Active Substance: REMIFENTANIL HYDROCHLORIDE
     Dosage: UNK
     Route: 042
     Dates: start: 20220530, end: 20220530
  196. REMIFENTANIL HYDROCHLORIDE [Concomitant]
     Active Substance: REMIFENTANIL HYDROCHLORIDE
     Dosage: UNK
     Route: 042
     Dates: start: 20220531, end: 20220531
  197. REMIFENTANIL HYDROCHLORIDE [Concomitant]
     Active Substance: REMIFENTANIL HYDROCHLORIDE
     Dosage: UNK
     Route: 042
     Dates: start: 20220601, end: 20220601
  198. REMIFENTANIL HYDROCHLORIDE [Concomitant]
     Active Substance: REMIFENTANIL HYDROCHLORIDE
     Dosage: UNK
     Route: 042
     Dates: start: 20220602, end: 20220602
  199. REMIFENTANIL HYDROCHLORIDE [Concomitant]
     Active Substance: REMIFENTANIL HYDROCHLORIDE
     Dosage: UNK
     Route: 042
     Dates: start: 20220603, end: 20220603
  200. REMIFENTANIL HYDROCHLORIDE [Concomitant]
     Active Substance: REMIFENTANIL HYDROCHLORIDE
     Dosage: UNK
     Route: 042
     Dates: start: 20220604, end: 20220604
  201. REMIFENTANIL HYDROCHLORIDE [Concomitant]
     Active Substance: REMIFENTANIL HYDROCHLORIDE
     Dosage: UNK
     Route: 042
     Dates: start: 20220605, end: 20220606
  202. REMIFENTANIL HYDROCHLORIDE [Concomitant]
     Active Substance: REMIFENTANIL HYDROCHLORIDE
     Dosage: UNK
     Route: 042
     Dates: start: 20220607, end: 20220607
  203. REMIFENTANIL HYDROCHLORIDE [Concomitant]
     Active Substance: REMIFENTANIL HYDROCHLORIDE
     Dosage: UNK
     Route: 042
     Dates: start: 20220608, end: 20220608
  204. REMIFENTANIL HYDROCHLORIDE [Concomitant]
     Active Substance: REMIFENTANIL HYDROCHLORIDE
     Dosage: UNK
     Route: 042
     Dates: start: 20220609, end: 20220609
  205. REMIFENTANIL HYDROCHLORIDE [Concomitant]
     Active Substance: REMIFENTANIL HYDROCHLORIDE
     Dosage: UNK
     Route: 042
     Dates: start: 20220610, end: 20220610
  206. REMIFENTANIL HYDROCHLORIDE [Concomitant]
     Active Substance: REMIFENTANIL HYDROCHLORIDE
     Dosage: UNK
     Route: 042
     Dates: start: 20220611, end: 20220611
  207. REMIFENTANIL HYDROCHLORIDE [Concomitant]
     Active Substance: REMIFENTANIL HYDROCHLORIDE
     Dosage: UNK
     Route: 042
     Dates: start: 20220612, end: 20220612
  208. COMPOUND SODIUM CHLORIDE [CALCIUM CHLORIDE;POTASSIUM CHLORIDE;SODIUM C [Concomitant]
     Indication: Dehydration
     Dosage: UNK
     Route: 042
     Dates: start: 20220511, end: 20220511
  209. COMPOUND SODIUM CHLORIDE [CALCIUM CHLORIDE;POTASSIUM CHLORIDE;SODIUM C [Concomitant]
     Dosage: UNK
     Route: 042
     Dates: start: 20220512, end: 20220512
  210. COMPOUND SODIUM CHLORIDE [CALCIUM CHLORIDE;POTASSIUM CHLORIDE;SODIUM C [Concomitant]
     Dosage: UNK
     Route: 042
     Dates: start: 20220514, end: 20220514
  211. COMPOUND SODIUM CHLORIDE [CALCIUM CHLORIDE;POTASSIUM CHLORIDE;SODIUM C [Concomitant]
     Dosage: UNK
     Route: 042
     Dates: start: 20220515, end: 20220515
  212. TERBUTALINE SULFATE [Concomitant]
     Active Substance: TERBUTALINE SULFATE
     Indication: Asthma
     Dosage: UNK
     Route: 055
     Dates: start: 20220531
  213. TIGECYCLINE [Concomitant]
     Active Substance: TIGECYCLINE
     Indication: Infection prophylaxis
     Dosage: UNK
     Route: 042
     Dates: start: 20220601, end: 20220601
  214. OMEPRAZOLE SODIUM [Concomitant]
     Active Substance: OMEPRAZOLE SODIUM
     Indication: Prophylaxis
     Dosage: UNK
     Route: 042
     Dates: start: 20220511, end: 20220511
  215. CASPOFUNGIN ACETATE [Concomitant]
     Active Substance: CASPOFUNGIN ACETATE
     Indication: Anti-infective therapy
     Dosage: UNK
     Dates: start: 20220602, end: 20220605
  216. LIDOCAINE HYDROCHLORIDE [Concomitant]
     Active Substance: LIDOCAINE HYDROCHLORIDE
     Indication: Drug abuse
     Dosage: UNK
     Route: 050
     Dates: start: 20220511, end: 20220511
  217. LIDOCAINE HYDROCHLORIDE [Concomitant]
     Active Substance: LIDOCAINE HYDROCHLORIDE
     Dosage: UNK
     Route: 050
     Dates: start: 20220514, end: 20220514
  218. VORICONAZOLE [Concomitant]
     Active Substance: VORICONAZOLE
     Indication: Anti-infective therapy
     Dosage: UNK
     Route: 042
     Dates: start: 20220605
  219. ISOPROTERENOL HYDROCHLORIDE [Concomitant]
     Active Substance: ISOPROTERENOL HYDROCHLORIDE
     Indication: Cardiovascular disorder
     Dosage: UNK
     Route: 050
     Dates: start: 20220512, end: 20220512
  220. POTASSIUM CHLORIDE [Concomitant]
     Active Substance: POTASSIUM CHLORIDE
     Indication: Mineral supplementation
     Dosage: UNK
     Route: 042
     Dates: start: 20220512, end: 20220512
  221. CALCIUM GLUCONATE [Concomitant]
     Active Substance: CALCIUM GLUCONATE
     Indication: Electrolyte substitution therapy
     Dosage: UNK
     Route: 050
     Dates: start: 20220512, end: 20220512
  222. CALCIUM GLUCONATE [Concomitant]
     Active Substance: CALCIUM GLUCONATE
     Indication: Electrolyte imbalance
     Dosage: UNK
     Route: 042
     Dates: start: 20220515, end: 20220515
  223. CALCIUM GLUCONATE [Concomitant]
     Active Substance: CALCIUM GLUCONATE
     Dosage: UNK
     Route: 042
     Dates: start: 20220517, end: 20220517
  224. CALCIUM GLUCONATE [Concomitant]
     Active Substance: CALCIUM GLUCONATE
     Dosage: UNK
     Route: 042
     Dates: start: 20220518, end: 20220518
  225. CALCIUM GLUCONATE [Concomitant]
     Active Substance: CALCIUM GLUCONATE
     Dosage: UNK
     Route: 042
     Dates: start: 20220519, end: 20220519
  226. CALCIUM GLUCONATE [Concomitant]
     Active Substance: CALCIUM GLUCONATE
     Dosage: UNK
     Route: 042
     Dates: start: 20220522, end: 20220523
  227. CALCIUM GLUCONATE [Concomitant]
     Active Substance: CALCIUM GLUCONATE
     Dosage: UNK
     Route: 042
     Dates: start: 20220524, end: 20220524
  228. VITAMIN C [Concomitant]
     Active Substance: ASCORBIC ACID
     Indication: Supportive care
     Dosage: UNK
     Route: 042
     Dates: start: 20220516, end: 20220516
  229. VITAMIN C [Concomitant]
     Active Substance: ASCORBIC ACID
     Dosage: UNK
     Route: 042
     Dates: start: 20220528, end: 20220529
  230. DEXAMETHASONE SODIUM PHOSPHATE [Concomitant]
     Active Substance: DEXAMETHASONE PHOSPHATE\DEXAMETHASONE SODIUM PHOSPHATE
     Indication: Antiallergic therapy
     Dosage: UNK
     Route: 042
     Dates: start: 20220518, end: 20220518
  231. CALAMINE [Concomitant]
     Active Substance: CALAMINE\FERRIC OXIDE RED\ZINC OXIDE
     Indication: Antiallergic therapy
     Dosage: LOTION, PERCUTANEOUS
     Dates: start: 20220521, end: 20220521
  232. VITAMIN B6 [Concomitant]
     Active Substance: PYRIDOXINE HYDROCHLORIDE
     Indication: Supportive care
     Dosage: UNK
     Route: 042
     Dates: start: 20220528, end: 20220529
  233. INSULIN HUMAN [Concomitant]
     Active Substance: INSULIN HUMAN
     Indication: Nutritional supplementation
  234. NOREPINEPHRINE BITARTRATE [Concomitant]
     Active Substance: NOREPINEPHRINE BITARTRATE
     Indication: Prophylaxis
     Dosage: UNK
     Route: 050
     Dates: start: 20220511, end: 20220511
  235. NOREPINEPHRINE BITARTRATE [Concomitant]
     Active Substance: NOREPINEPHRINE BITARTRATE
     Dosage: UNK
     Route: 050
     Dates: start: 20220512, end: 20220512
  236. NOREPINEPHRINE BITARTRATE [Concomitant]
     Active Substance: NOREPINEPHRINE BITARTRATE
     Dosage: UNK
     Route: 042
     Dates: start: 20220601, end: 20220601
  237. NOREPINEPHRINE BITARTRATE [Concomitant]
     Active Substance: NOREPINEPHRINE BITARTRATE
     Dosage: UNK
     Route: 042
     Dates: start: 20220604, end: 20220604
  238. NOREPINEPHRINE BITARTRATE [Concomitant]
     Active Substance: NOREPINEPHRINE BITARTRATE
     Dosage: UNK
     Route: 042
     Dates: start: 20220605, end: 20220605
  239. NOREPINEPHRINE BITARTRATE [Concomitant]
     Active Substance: NOREPINEPHRINE BITARTRATE
     Dosage: UNK
     Route: 042
     Dates: start: 20220606, end: 20220607
  240. PROTHROMBIN COMPLEX CONCENTRATE NOS [Concomitant]
     Active Substance: COAGULATION FACTOR IX HUMAN\COAGULATION FACTOR VII HUMAN\COAGULATION FACTOR X HUMAN\PROTHROMBIN
     Indication: Haemostasis
     Dosage: UNK
     Route: 042
     Dates: start: 20220531, end: 20220531
  241. PROTHROMBIN COMPLEX CONCENTRATE NOS [Concomitant]
     Active Substance: COAGULATION FACTOR IX HUMAN\COAGULATION FACTOR VII HUMAN\COAGULATION FACTOR X HUMAN\PROTHROMBIN
     Dosage: UNK
     Route: 042
     Dates: start: 20220602, end: 20220602
  242. PROTHROMBIN COMPLEX CONCENTRATE NOS [Concomitant]
     Active Substance: COAGULATION FACTOR IX HUMAN\COAGULATION FACTOR VII HUMAN\COAGULATION FACTOR X HUMAN\PROTHROMBIN
     Dosage: UNK
     Route: 042
     Dates: start: 20220610, end: 20220610
  243. DEXMEDETOMIDINE HYDROCHLORIDE [Concomitant]
     Active Substance: DEXMEDETOMIDINE HYDROCHLORIDE
     Indication: Sedation
     Dosage: UNK
     Route: 042
     Dates: start: 20220531, end: 20220601
  244. CHLORHEXIDINE [Concomitant]
     Active Substance: CHLORHEXIDINE\CHLORHEXIDINE GLUCONATE
     Indication: Dental disorder prophylaxis
     Dosage: GARGLE COMPOUND, NOT ONGOING
     Route: 050
     Dates: start: 20220602
  245. ROCURONIUM BROMIDE [Concomitant]
     Active Substance: ROCURONIUM BROMIDE
     Indication: Sedation
     Dosage: UNK
     Route: 042
     Dates: start: 20220602, end: 20220602
  246. ROCURONIUM BROMIDE [Concomitant]
     Active Substance: ROCURONIUM BROMIDE
     Indication: Hypotonia
     Dosage: UNK
     Route: 042
     Dates: start: 20220604, end: 20220605
  247. ROCURONIUM BROMIDE [Concomitant]
     Active Substance: ROCURONIUM BROMIDE
     Dosage: UNK
     Route: 042
     Dates: start: 20220606, end: 20220608
  248. ROCURONIUM BROMIDE [Concomitant]
     Active Substance: ROCURONIUM BROMIDE
     Dosage: UNK
     Route: 042
     Dates: start: 20220609, end: 20220609
  249. ROCURONIUM BROMIDE [Concomitant]
     Active Substance: ROCURONIUM BROMIDE
     Dosage: UNK
     Route: 042
     Dates: start: 20220610, end: 20220610
  250. ROCURONIUM BROMIDE [Concomitant]
     Active Substance: ROCURONIUM BROMIDE
     Dosage: UNK
     Route: 042
     Dates: start: 20220611, end: 20220612
  251. TOBRAMYCIN AND DEXAMETHASONE [Concomitant]
     Active Substance: DEXAMETHASONE\TOBRAMYCIN
     Indication: Antiallergic therapy
     Dosage: UNK
     Route: 047
     Dates: start: 20220603, end: 20220603
  252. RECOMBINANT HUMAN BRAIN NATRIURETIC PEPTIDE [Concomitant]
     Indication: Prophylaxis
     Dosage: UNK
     Route: 042
     Dates: start: 20220604, end: 20220604
  253. RECOMBINANT HUMAN BRAIN NATRIURETIC PEPTIDE [Concomitant]
     Dosage: UNK
     Route: 042
     Dates: start: 20220605, end: 20220605
  254. FIBRINOGEN HUMAN [Concomitant]
     Active Substance: FIBRINOGEN HUMAN
     Indication: Haemorrhage
     Dosage: UNK
     Route: 042
     Dates: start: 20220605, end: 20220606
  255. FIBRINOGEN HUMAN [Concomitant]
     Active Substance: FIBRINOGEN HUMAN
     Dosage: UNK
     Route: 042
     Dates: start: 20220608, end: 20220610

REACTIONS (1)
  - Overdose [Unknown]
